FAERS Safety Report 6887074-3 (Version None)
Quarter: 2010Q3

REPORT INFORMATION
  Report Type: 
  Country: None (occurrence: None)
  Receive Date: 20100730
  Receipt Date: 20100721
  Transmission Date: 20110219
  Serious: Yes (Hospitalization)
  Sender: FDA-Public Use
  Company Number: US-JNJFOC-20100607960

PATIENT
  Age: 9 Year
  Sex: Male
  Weight: 29.48 kg

DRUGS (5)
  1. CHILDREN'S MOTRIN [Suspect]
     Indication: PYREXIA
     Route: 048
  2. CHILDREN'S MOTRIN [Suspect]
     Indication: SINUSITIS
     Route: 048
  3. CHILDREN'S MOTRIN [Suspect]
     Indication: OROPHARYNGEAL PAIN
     Route: 048
  4. CHILDREN'S TYLENOL SUSPENSION [Suspect]
     Route: 048
  5. CHILDREN'S TYLENOL SUSPENSION [Suspect]
     Indication: PYREXIA
     Dosage: 1-2 TEASPOONS
     Route: 048

REACTIONS (2)
  - HYPERSENSITIVITY [None]
  - PRODUCT QUALITY ISSUE [None]
